FAERS Safety Report 10590661 (Version 1)
Quarter: 2014Q4

REPORT INFORMATION
  Report Type: Spontaneous
  Country: US (occurrence: US)
  Receive Date: 20141118
  Receipt Date: 20141118
  Transmission Date: 20150529
  Serious: Yes (Other)
  Sender: FDA-Public Use
  Company Number: US-BAYER-2014-165553

PATIENT
  Age: 72 Year
  Sex: Male

DRUGS (1)
  1. NEXAVAR [Suspect]
     Active Substance: SORAFENIB
     Indication: RENAL CANCER
     Dosage: UNK
     Dates: start: 2007, end: 20141022

REACTIONS (8)
  - Femoral artery occlusion [None]
  - Localised infection [None]
  - Scratch [None]
  - Secretion discharge [None]
  - Nephrectomy [None]
  - Erythema [None]
  - Pain in extremity [None]
  - Disorientation [None]
